FAERS Safety Report 6535088-5 (Version None)
Quarter: 2010Q1

REPORT INFORMATION
  Report Type: 
  Country: None (occurrence: None)
  Receive Date: 20100113
  Receipt Date: 20100105
  Transmission Date: 20100710
  Serious: Yes (Hospitalization)
  Sender: FDA-Public Use
  Company Number: US-BIOGENIDEC-2009BI011558

PATIENT
  Age: 52 Year
  Sex: Female
  Weight: 129 kg

DRUGS (3)
  1. AVONEX [Suspect]
     Indication: MULTIPLE SCLEROSIS
     Route: 030
     Dates: start: 20000701, end: 20030101
  2. AVONEX [Suspect]
     Route: 030
     Dates: start: 20030101
  3. AVONEX [Suspect]
     Route: 030
     Dates: start: 20090202

REACTIONS (9)
  - BALANCE DISORDER [None]
  - BLOOD PRESSURE INCREASED [None]
  - CELLULITIS [None]
  - ENDOMETRIAL CANCER [None]
  - GAIT DISTURBANCE [None]
  - HYPOAESTHESIA [None]
  - MULTIPLE SCLEROSIS [None]
  - RESTLESS LEGS SYNDROME [None]
  - WEIGHT INCREASED [None]
